FAERS Safety Report 11426703 (Version 1)
Quarter: 2015Q3

REPORT INFORMATION
  Report Type: Spontaneous
  Country: US (occurrence: US)
  Receive Date: 20150821
  Receipt Date: 20150821
  Transmission Date: 20151125
  Serious: No
  Sender: FDA-Public Use
  Company Number: US-ELI_LILLY_AND_COMPANY-US201307007011

PATIENT
  Age: 2 Year
  Sex: Female

DRUGS (1)
  1. CIALIS [Suspect]
     Active Substance: TADALAFIL
     Dosage: 20 MG, SINGLE
     Dates: start: 20130717, end: 20130717

REACTIONS (3)
  - Accidental overdose [Recovered/Resolved]
  - Wrong patient received medication [Recovered/Resolved]
  - Accidental exposure to product by child [None]
